FAERS Safety Report 22520657 (Version 1)
Quarter: 2023Q2

REPORT INFORMATION
  Report Type: Spontaneous
  Country: US (occurrence: US)
  Receive Date: 20230605
  Receipt Date: 20230605
  Transmission Date: 20230721
  Serious: No
  Sender: FDA-Public Use
  Company Number: US-TEVA-2023-US-2890169

PATIENT
  Age: 75 Year
  Sex: Male

DRUGS (1)
  1. ALPRAZOLAM [Suspect]
     Active Substance: ALPRAZOLAM
     Indication: Anxiety
     Dosage: 2 MILLIGRAM DAILY;
     Route: 065
     Dates: start: 2023

REACTIONS (2)
  - Drug ineffective [Unknown]
  - Panic disorder [Unknown]

NARRATIVE: CASE EVENT DATE: 20230101
